FAERS Safety Report 17310679 (Version 2)
Quarter: 2020Q1

REPORT INFORMATION
  Report Type: Spontaneous
  Country: US (occurrence: US)
  Receive Date: 20200123
  Receipt Date: 20200311
  Transmission Date: 20200409
  Serious: Yes (Hospitalization)
  Sender: FDA-Public Use
  Company Number: US-VIFOR (INTERNATIONAL) INC.-VIT-2020-00752

PATIENT
  Sex: Male
  Weight: 94.89 kg

DRUGS (22)
  1. METAMUCIL [Concomitant]
     Active Substance: PLANTAGO SEED
  2. VITAMIN B12 [Concomitant]
     Active Substance: CYANOCOBALAMIN
  3. BENZONATATE. [Concomitant]
     Active Substance: BENZONATATE
  4. CARVEDILOL. [Concomitant]
     Active Substance: CARVEDILOL
  5. ELIQUIS [Concomitant]
     Active Substance: APIXABAN
  6. IRBESARTAN. [Concomitant]
     Active Substance: IRBESARTAN
  7. OMEGA-3-6-9 [Concomitant]
  8. FLUTICASONE SPR [Concomitant]
  9. HYDRALAZINE [Concomitant]
     Active Substance: HYDRALAZINE HYDROCHLORIDE
  10. REPATHA [Concomitant]
     Active Substance: EVOLOCUMAB
  11. SODIUM BICAR [Concomitant]
  12. EZETIMIBE. [Concomitant]
     Active Substance: EZETIMIBE
  13. FLAXSEED [Concomitant]
     Active Substance: FLAX SEED
  14. ISOSORB [Concomitant]
  15. TRAMADOL HCL [Concomitant]
     Active Substance: TRAMADOL HYDROCHLORIDE
  16. ASPIRIN. [Concomitant]
     Active Substance: ASPIRIN
  17. TRESIBA FLEX [Concomitant]
  18. HUMALOG [Concomitant]
     Active Substance: INSULIN LISPRO
  19. VELTASSA [Suspect]
     Active Substance: PATIROMER
     Indication: HYPERKALAEMIA
     Dosage: TAKING ORALLY BY MIXING WITH WATER.
     Route: 048
  20. ACETAMIN [Concomitant]
     Active Substance: ACETAMINOPHEN
  21. CINNAMON. [Concomitant]
     Active Substance: CINNAMON
  22. COENZYME [Concomitant]
     Active Substance: UBIDECARENONE

REACTIONS (3)
  - Dyspnoea [Unknown]
  - Bronchitis [Unknown]
  - Cough [Unknown]
